FAERS Safety Report 9459892 (Version 1)
Quarter: 2013Q3

REPORT INFORMATION
  Report Type: Spontaneous
  Country: DE (occurrence: DE)
  Receive Date: 20130815
  Receipt Date: 20130815
  Transmission Date: 20140515
  Serious: Yes (Other)
  Sender: FDA-Public Use
  Company Number: DE-PFIZER INC-2013233688

PATIENT
  Age: 40 Year
  Sex: Female
  Weight: 85 kg

DRUGS (4)
  1. ZOLOFT [Suspect]
     Indication: DEPRESSION
     Dosage: 50 MG, 1X/DAY
     Route: 048
  2. ZOLOFT [Suspect]
     Dosage: 75 MG, 1X/DAY, SINCE GESTATION WEEK 7
     Route: 048
  3. ZOLOFT [Suspect]
     Dosage: 100 MG, 1X/DAY
     Route: 048
  4. FOLIC ACID [Concomitant]
     Indication: PROPHYLAXIS OF NEURAL TUBE DEFECT
     Dosage: 4 MG/D
     Route: 048

REACTIONS (1)
  - Abortion missed [Recovered/Resolved]
